FAERS Safety Report 9472431 (Version 1)
Quarter: 2013Q3

REPORT INFORMATION
  Report Type: Spontaneous
  Country: US (occurrence: None)
  Receive Date: 20130821
  Receipt Date: 20130821
  Transmission Date: 20140515
  Serious: Yes (Disabling)
  Sender: FDA-Public Use
  Company Number: None

PATIENT
  Age: 51 Year
  Sex: Female
  Weight: 60.33 kg

DRUGS (1)
  1. LYRICA [Suspect]
     Indication: NEUROPATHY PERIPHERAL
     Dosage: 1?TWICE DAILY?TAKEN BY MOUTH
     Route: 048

REACTIONS (15)
  - Muscle atrophy [None]
  - Vision blurred [None]
  - Arthralgia [None]
  - Neurological symptom [None]
  - Pulmonary mass [None]
  - Gait disturbance [None]
  - Gastrointestinal disorder [None]
  - Weight increased [None]
  - Loss of libido [None]
  - Disturbance in attention [None]
  - Vision blurred [None]
  - Anxiety [None]
  - Amnesia [None]
  - Depression [None]
  - Suicidal ideation [None]
